FAERS Safety Report 21833395 (Version 1)
Quarter: 2023Q1

REPORT INFORMATION
  Report Type: Spontaneous
  Country: GB (occurrence: None)
  Receive Date: 20230107
  Receipt Date: 20230107
  Transmission Date: 20230417
  Serious: Yes (Hospitalization, Disabling)
  Sender: FDA-Public Use
  Company Number: None

PATIENT

DRUGS (4)
  1. LOSARTAN [Suspect]
     Active Substance: LOSARTAN
     Dosage: LOSARTAN 100MG OD
  2. METFORMIN [Concomitant]
     Active Substance: METFORMIN HYDROCHLORIDE
     Dosage: METFORMIN MR 500MG OD
  3. ACETAMINOPHEN [Concomitant]
     Active Substance: ACETAMINOPHEN
     Dosage: PARACETAMOL 500MG PRN
  4. RISPERIDONE [Concomitant]
     Active Substance: RISPERIDONE
     Dosage: RISPERIDONE 500MCG ON

REACTIONS (1)
  - Acute kidney injury [Recovered/Resolved]
